FAERS Safety Report 8390515-6 (Version None)
Quarter: 2012Q2

REPORT INFORMATION
  Report Type: 
  Country: None (occurrence: None)
  Receive Date: 20120517
  Receipt Date: 20120509
  Transmission Date: 20120825
  Serious: Yes (Hospitalization)
  Sender: FDA-Public Use
  Company Number: 2012SP010453

PATIENT
  Age: 14 Year
  Sex: Female
  Weight: 52 kg

DRUGS (7)
  1. NEXPLANON [Suspect]
     Indication: CONTRACEPTION
     Dosage: 1 DF;SC
     Route: 058
     Dates: start: 20120124
  2. ATARAX [Concomitant]
  3. IMOVANE [Concomitant]
  4. WYSTAMM (RAPATADINE) [Concomitant]
  5. AMOXICILLIN AND CLAVULANATE POTASSIUM [Concomitant]
  6. BACTRIM [Concomitant]
  7. KETOPROFEN [Concomitant]

REACTIONS (9)
  - VOMITING [None]
  - TUBULOINTERSTITIAL NEPHRITIS [None]
  - ABDOMINAL PAIN [None]
  - RENAL FAILURE ACUTE [None]
  - REFUSAL OF TREATMENT BY PATIENT [None]
  - INFLUENZA [None]
  - NAUSEA [None]
  - FEEDING DISORDER [None]
  - BRONCHITIS [None]
